FAERS Safety Report 5688923-7 (Version None)
Quarter: 2008Q1

REPORT INFORMATION
  Report Type: 
  Country: None (occurrence: None)
  Receive Date: 20080331
  Receipt Date: 20080318
  Transmission Date: 20080703
  Serious: Yes (Death)
  Sender: FDA-Public Use
  Company Number: FI-ROCHE-553791

PATIENT
  Age: 77 Year
  Sex: Female
  Weight: 93.5 kg

DRUGS (6)
  1. IBANDRONIC ACID [Suspect]
     Indication: OSTEOPOROSIS POSTMENOPAUSAL
     Route: 048
     Dates: start: 20070404
  2. CALCICHEW D3 FORTE [Suspect]
     Indication: OSTEOPOROSIS POSTMENOPAUSAL
     Dosage: DOSE: CA:1 GRAM, D3:800 KY, FREQUENCY:1 X 2.
     Route: 048
     Dates: start: 20070404
  3. ATENOLOL [Concomitant]
     Dates: start: 19750101
  4. AMITRID [Concomitant]
     Dates: start: 20061201
  5. DUREKAL [Concomitant]
     Dates: start: 20061201
  6. PREDNISOLONE [Concomitant]
     Dates: start: 20061201

REACTIONS (1)
  - DEATH [None]
